FAERS Safety Report 8904670 (Version 5)
Quarter: 2013Q2

REPORT INFORMATION
  Report Type: Spontaneous
  Country: US (occurrence: US)
  Receive Date: 20121112
  Receipt Date: 20130402
  Transmission Date: 20140414
  Serious: Yes (Hospitalization, Disabling, Other)
  Sender: FDA-Public Use
  Company Number: US-009507513-1211USA004393

PATIENT
  Sex: Male

DRUGS (8)
  1. FOSAMAX [Suspect]
     Indication: OSTEOPOROSIS
     Dosage: 70 MG, QW
     Route: 048
     Dates: start: 20021216, end: 20110421
  2. FOSAMAX [Suspect]
     Indication: OSTEOPOROSIS
     Dosage: 70 MG, UNK
     Route: 048
  3. ALENDRONATE SODIUM [Suspect]
     Indication: OSTEOPOROSIS
     Dosage: 70 MG, UNK
     Route: 048
  4. LUPRON [Concomitant]
     Indication: RADICAL PROSTATECTOMY
     Dosage: 22.5 MG, QD
     Route: 058
     Dates: start: 1992
  5. ATENOLOL [Concomitant]
     Indication: HYPERTENSION
     Dosage: UNK
     Dates: start: 2002, end: 200611
  6. ALTACE [Concomitant]
     Indication: HYPERTENSION
     Dosage: 5 MG, QD
     Dates: start: 200405, end: 201103
  7. HORMONES (UNSPECIFIED) [Concomitant]
  8. HYDROCHLOROTHIAZIDE [Concomitant]
     Indication: HYPERTENSION
     Dosage: 12.5 MG, UNK
     Dates: start: 20060421

REACTIONS (26)
  - Open reduction of fracture [Not Recovered/Not Resolved]
  - Fall [Unknown]
  - Femur fracture [Not Recovered/Not Resolved]
  - High turnover osteopathy [Not Recovered/Not Resolved]
  - Foot fracture [Unknown]
  - Hypokalaemia [Unknown]
  - Anaemia [Unknown]
  - Blood cholesterol increased [Unknown]
  - Fluid retention [Unknown]
  - Syncope [Unknown]
  - Dyspnoea exertional [Unknown]
  - Bunion [Unknown]
  - Osteoarthritis [Unknown]
  - Mitral valve incompetence [Unknown]
  - Aortic valve incompetence [Unknown]
  - Dyspnoea [Not Recovered/Not Resolved]
  - Skin lesion [Unknown]
  - Arteriosclerosis [Unknown]
  - Restrictive cardiomyopathy [Unknown]
  - Bone infarction [Unknown]
  - Enchondroma [Unknown]
  - Atrioventricular block complete [Unknown]
  - Dementia [Unknown]
  - Neuropathy peripheral [Unknown]
  - Local swelling [Unknown]
  - Drug ineffective [Unknown]
